FAERS Safety Report 5845542-7 (Version None)
Quarter: 2008Q3

REPORT INFORMATION
  Report Type: 
  Country: None (occurrence: None)
  Receive Date: 20080814
  Receipt Date: 20080805
  Transmission Date: 20090109
  Serious: Yes (Other)
  Sender: FDA-Public Use
  Company Number: DK-WYE-G01958008

PATIENT
  Sex: Male
  Weight: 125 kg

DRUGS (7)
  1. EFFEXOR [Suspect]
     Indication: DEPRESSION
     Route: 048
     Dates: start: 20070215, end: 20071114
  2. EFFEXOR [Suspect]
     Route: 048
     Dates: start: 20071115, end: 20080619
  3. EFFEXOR [Suspect]
     Route: 048
     Dates: start: 20080718
  4. EFFEXOR [Suspect]
     Route: 048
     Dates: start: 20080620, end: 20080717
  5. TRUXAL [Concomitant]
     Dosage: 15MG WHEN NEEDED. 45MG IN THE EVENING WHEN NEEDED FOR SLEEP
     Route: 048
     Dates: start: 20070101
  6. ATENOLOL [Concomitant]
     Indication: BLOOD PRESSURE INCREASED
  7. VANDRAL RETARD [Suspect]
     Indication: DEPRESSION
     Dates: start: 20080620, end: 20080717

REACTIONS (5)
  - EXERCISE TOLERANCE DECREASED [None]
  - FEELINGS OF WORTHLESSNESS [None]
  - HYPERHIDROSIS [None]
  - SUICIDAL IDEATION [None]
  - THINKING ABNORMAL [None]
